FAERS Safety Report 9326222 (Version 1)
Quarter: 2013Q2

REPORT INFORMATION
  Report Type: Spontaneous
  Country: NL (occurrence: NL)
  Receive Date: 20130604
  Receipt Date: 20130604
  Transmission Date: 20140414
  Serious: Yes (Hospitalization)
  Sender: FDA-Public Use
  Company Number: NL-NOVOPROD-378970

PATIENT
  Age: 74 Year
  Sex: Female
  Weight: 124 kg

DRUGS (7)
  1. VICTOZA [Suspect]
     Indication: TYPE 2 DIABETES MELLITUS
     Dosage: 1.8 MG, QD
     Route: 058
     Dates: start: 20120612
  2. NOVORAPID [Concomitant]
     Indication: TYPE 2 DIABETES MELLITUS
     Route: 058
  3. INSULIN LISPRO [Concomitant]
     Dosage: 26 IU, BID
     Route: 058
  4. METFORMIN [Concomitant]
     Indication: TYPE 2 DIABETES MELLITUS
     Dosage: 500 MG, BID
     Route: 048
  5. HYDROCHLOROTHIAZIDE IRBESARTAN [Concomitant]
     Indication: HYPERTENSION
     Dosage: 12.5 TAB, SINGLE
     Route: 048
  6. IMIQUIMOD [Concomitant]
     Dosage: UNK, SINGLE
  7. ESOMEPRAZOLE MAGNESIUM [Concomitant]
     Dosage: 40 MG, BID
     Route: 048

REACTIONS (2)
  - Gastroenteritis [Recovered/Resolved]
  - Dehydration [Recovered/Resolved]
